FAERS Safety Report 21792374 (Version 1)
Quarter: 2022Q4

REPORT INFORMATION
  Report Type: Spontaneous
  Country: RU (occurrence: RU)
  Receive Date: 20221229
  Receipt Date: 20221229
  Transmission Date: 20230112
  Serious: Yes (Hospitalization, Other)
  Sender: FDA-Public Use
  Company Number: RU-JNJFOC-20221248685

PATIENT
  Age: 5 Decade
  Sex: Male
  Weight: 53 kg

DRUGS (10)
  1. SIRTURO [Suspect]
     Active Substance: BEDAQUILINE FUMARATE
     Indication: Tuberculosis
     Dosage: DOSE:0.2
     Route: 048
     Dates: start: 20220506, end: 20221212
  2. LEVOFLOXACIN [Suspect]
     Active Substance: LEVOFLOXACIN
     Indication: Tuberculosis
     Dosage: DOSE: 1.0
     Route: 065
     Dates: start: 20220506, end: 20221212
  3. LINEZOLID [Suspect]
     Active Substance: LINEZOLID
     Indication: Tuberculosis
     Dosage: DOSE: 0.6
     Route: 065
     Dates: start: 20220506
  4. LINEZOLID [Suspect]
     Active Substance: LINEZOLID
     Dosage: DOSE: 0.3
     Route: 065
     Dates: start: 20221207
  5. CLOFAZIMINE [Suspect]
     Active Substance: CLOFAZIMINE
     Indication: Tuberculosis
     Dosage: DOSE; 0.1
     Route: 065
     Dates: start: 20220506, end: 20221212
  6. TENOFOVIR [Concomitant]
     Active Substance: TENOFOVIR
     Indication: HIV infection
     Dosage: DOSE: 0.3
     Route: 048
     Dates: start: 20220601
  7. LAMIVUDINE [Concomitant]
     Active Substance: LAMIVUDINE
     Indication: HIV infection
     Dosage: DOSE:0.3
     Route: 048
     Dates: start: 20220601
  8. FOLIC ACID [Concomitant]
     Active Substance: FOLIC ACID
     Indication: Anaemia
     Route: 065
     Dates: start: 20220506
  9. BENFOTIAMINE;PYRIDOXAL [Concomitant]
     Indication: Prophylaxis
     Dosage: EVERY OTHER DAY
     Route: 065
     Dates: start: 20220506
  10. DOLUTEGRAVIR [Concomitant]
     Active Substance: DOLUTEGRAVIR
     Indication: HIV infection
     Dosage: 0.05
     Route: 048
     Dates: start: 20220601

REACTIONS (2)
  - Pancytopenia [Recovering/Resolving]
  - Thrombocytopenia [Recovering/Resolving]

NARRATIVE: CASE EVENT DATE: 20220520
